FAERS Safety Report 19919035 (Version 1)
Quarter: 2021Q4

REPORT INFORMATION
  Report Type: Spontaneous
  Country: GB (occurrence: GB)
  Receive Date: 20211005
  Receipt Date: 20211005
  Transmission Date: 20220303
  Serious: Yes (Other)
  Sender: FDA-Public Use
  Company Number: GB-MAYNE PHARMA-2021MYN000576

PATIENT
  Age: 45 Year
  Sex: Female

DRUGS (8)
  1. TAMOXIFEN CITRATE [Suspect]
     Active Substance: TAMOXIFEN CITRATE
     Indication: Breast cancer stage IV
     Dosage: UNK, QD, EVERY 1 DAY
     Route: 048
     Dates: start: 2016, end: 2017
  2. EVEROLIMUS [Suspect]
     Active Substance: EVEROLIMUS
     Indication: Breast cancer stage IV
     Dosage: UNK, QD; EVERY 1 DAY
     Route: 048
     Dates: start: 201909, end: 202006
  3. CAPECITABINE [Concomitant]
     Active Substance: CAPECITABINE
     Indication: Product used for unknown indication
     Dosage: UNK
     Dates: start: 202102, end: 202107
  4. PACLITAXEL [Concomitant]
     Active Substance: PACLITAXEL
     Indication: Product used for unknown indication
     Dosage: UNK
     Route: 065
     Dates: start: 202006, end: 202102
  5. EXEMESTANE [Suspect]
     Active Substance: EXEMESTANE
     Indication: Breast cancer stage IV
     Dosage: UNK, QD
     Route: 048
     Dates: start: 201909, end: 202006
  6. FULVESTRANT [Suspect]
     Active Substance: FULVESTRANT
     Indication: Breast cancer stage IV
     Dosage: UNK, EVERY MONTH
     Route: 030
     Dates: start: 202107
  7. LETROZOLE [Suspect]
     Active Substance: LETROZOLE
     Indication: Breast cancer stage IV
     Dosage: UNK, QD
     Route: 048
     Dates: start: 2017, end: 201909
  8. PALBOCICLIB [Suspect]
     Active Substance: PALBOCICLIB
     Indication: Breast cancer stage IV
     Dosage: UNK, QD
     Route: 065
     Dates: start: 2017, end: 201909

REACTIONS (8)
  - Disease progression [Unknown]
  - Breast cancer [Unknown]
  - Fatigue [Unknown]
  - Drug ineffective [Not Recovered/Not Resolved]
  - Asthenia [Unknown]
  - Arthralgia [Not Recovered/Not Resolved]
  - Myalgia [Not Recovered/Not Resolved]
  - Nausea [Not Recovered/Not Resolved]
